FAERS Safety Report 19967609 (Version 1)
Quarter: 2021Q4

REPORT INFORMATION
  Report Type: Spontaneous
  Country: US (occurrence: US)
  Receive Date: 20211018
  Receipt Date: 20211018
  Transmission Date: 20220303
  Serious: Yes (Death)
  Sender: FDA-Public Use
  Company Number: None

PATIENT
  Sex: Male
  Weight: 103.05 kg

DRUGS (14)
  1. SUNITINIB MALATE [Suspect]
     Active Substance: SUNITINIB MALATE
     Indication: Chronic lymphocytic leukaemia
     Route: 048
  2. AMLODIPINE BESYLATE [Concomitant]
     Active Substance: AMLODIPINE BESYLATE
  3. ASPIRIN [Concomitant]
     Active Substance: ASPIRIN
  4. CARVEDILOL [Concomitant]
     Active Substance: CARVEDILOL
  5. MINERALS\VITAMINS [Concomitant]
     Active Substance: MINERALS\VITAMINS
  6. COENZYME Q10 [Concomitant]
     Active Substance: DIETARY SUPPLEMENT\UBIDECARENONE
  7. MOVE FREE JOINT HEALTH ADVANCE [Concomitant]
  8. PANTOPRAZOLE SODIUM [Concomitant]
     Active Substance: PANTOPRAZOLE SODIUM
  9. VALSARTAN [Concomitant]
     Active Substance: VALSARTAN
  10. ATORVASTATIN [Concomitant]
     Active Substance: ATORVASTATIN
  11. POTASSIUM [Concomitant]
     Active Substance: POTASSIUM
  12. GABAPENTIN [Concomitant]
     Active Substance: GABAPENTIN
  13. ACETAMINOPHEN\CODEINE PHOSPHATE [Concomitant]
     Active Substance: ACETAMINOPHEN\CODEINE PHOSPHATE
  14. SUCRALFATE [Concomitant]
     Active Substance: SUCRALFATE

REACTIONS (1)
  - Death [None]
